FAERS Safety Report 10667950 (Version 5)
Quarter: 2015Q2

REPORT INFORMATION
  Report Type: Spontaneous
  Country: US (occurrence: US)
  Receive Date: 20141222
  Receipt Date: 20150420
  Transmission Date: 20150821
  Serious: Yes (Hospitalization, Congenital Anomaly, Other)
  Sender: FDA-Public Use
  Company Number: US-APOTEX-2014AP003639

PATIENT
  Age: 0 Day
  Sex: Female

DRUGS (1)
  1. PAXIL CR [Suspect]
     Active Substance: PAROXETINE HYDROCHLORIDE
     Indication: FOETAL EXPOSURE DURING PREGNANCY
     Dosage: UNK
     Route: 064

REACTIONS (30)
  - Heart disease congenital [Unknown]
  - Pulmonary oedema [Unknown]
  - Pulmonary hypertension [Recovering/Resolving]
  - Trisomy 21 [Unknown]
  - Condition aggravated [Unknown]
  - Developmental coordination disorder [Unknown]
  - Atrial septal defect [Unknown]
  - Dilatation ventricular [Unknown]
  - Congenital pulmonary artery anomaly [Unknown]
  - Congenital central nervous system anomaly [Unknown]
  - Failure to thrive [Unknown]
  - Bundle branch block right [Unknown]
  - Language disorder [Unknown]
  - Cardiac valve disease [Unknown]
  - Cardiomegaly [Unknown]
  - Mitral valve disease [Unknown]
  - Acute kidney injury [Unknown]
  - Coarctation of the aorta [Unknown]
  - Right ventricular hypertrophy [Unknown]
  - Cardiac failure congestive [Unknown]
  - Developmental delay [Unknown]
  - Autism [Unknown]
  - Mental retardation [Unknown]
  - Ventricular septal defect [Unknown]
  - Patent ductus arteriosus [Unknown]
  - Talipes [Unknown]
  - Respiratory distress [Unknown]
  - Aortic occlusion [Unknown]
  - Foetal exposure during pregnancy [Unknown]
  - Right ventricular dysfunction [Unknown]

NARRATIVE: CASE EVENT DATE: 20060927
